FAERS Safety Report 5691540-6 (Version None)
Quarter: 2008Q2

REPORT INFORMATION
  Report Type: 
  Country: None (occurrence: None)
  Receive Date: 20080402
  Receipt Date: 20080321
  Transmission Date: 20081010
  Serious: Yes (Life-Threatening, Hospitalization, Other)
  Sender: FDA-Public Use
  Company Number: JP-ELI_LILLY_AND_COMPANY-JP200708001197

PATIENT
  Sex: Male
  Weight: 56.6 kg

DRUGS (17)
  1. PEMETREXED [Suspect]
     Indication: PLEURAL MESOTHELIOMA MALIGNANT
     Dosage: 830 MG, OTHER
     Route: 042
     Dates: start: 20070205, end: 20070404
  2. CISPLATIN [Suspect]
     Indication: PLEURAL MESOTHELIOMA MALIGNANT
     Dosage: 125 MG, OTHER
     Route: 042
     Dates: start: 20070205, end: 20070302
  3. CISPLATIN [Suspect]
     Dosage: 75 MG, OTHER
     Route: 042
     Dates: start: 20070404, end: 20070411
  4. PANVITAN [Concomitant]
     Dosage: 1 MG, DAILY (1/D)
     Route: 048
     Dates: start: 20070127, end: 20070419
  5. CYANOCOBALAMIN [Concomitant]
     Dosage: 0.5 MG, OTHER
     Route: 030
     Dates: start: 20070126, end: 20070129
  6. CYANOCOBALAMIN [Concomitant]
     Dosage: 1 MG, OTHER
     Route: 030
     Dates: start: 20070310, end: 20070310
  7. MYSLEE [Concomitant]
     Dosage: 10 MG, DAILY (1/D)
     Route: 048
     Dates: end: 20070308
  8. LOXONIN [Concomitant]
     Dosage: 180 MG, DAILY (1/D)
     Route: 048
     Dates: end: 20070215
  9. MEDICON [Concomitant]
     Dosage: 90 MG, DAILY (1/D)
     Route: 048
     Dates: end: 20070315
  10. CYTOTEC [Concomitant]
     Dosage: 600 UG, DAILY (1/D)
     Route: 048
     Dates: end: 20070419
  11. URSO 250 [Concomitant]
     Dosage: 600 MG, DAILY (1/D)
     Route: 048
     Dates: end: 20070301
  12. CALONAL [Concomitant]
     Indication: CANCER PAIN
     Dosage: 600 MG, DAILY (1/D)
     Route: 048
     Dates: end: 20070420
  13. NAIXAN [Concomitant]
     Dosage: 600 MG, DAILY (1/D)
     Route: 048
     Dates: start: 20070319, end: 20070419
  14. OXYCONTIN [Concomitant]
     Indication: CANCER PAIN
     Dosage: 10 MG, DAILY (1/D)
     Route: 048
     Dates: start: 20070329, end: 20070418
  15. SERENACE [Concomitant]
     Dosage: 2 MG, DAILY (1/D)
     Route: 048
     Dates: start: 20070329, end: 20070416
  16. DECADRON [Concomitant]
     Indication: PROPHYLAXIS
     Dosage: 8 MG, UNK
     Route: 042
     Dates: start: 20070204, end: 20070406
  17. NASEA [Concomitant]
     Indication: PROPHYLAXIS
     Dosage: 0.3 MG, UNK
     Route: 042
     Dates: start: 20070205, end: 20070407

REACTIONS (5)
  - ANAEMIA [None]
  - HEPATIC FUNCTION ABNORMAL [None]
  - HYPOALBUMINAEMIA [None]
  - LYMPHOCYTE COUNT DECREASED [None]
  - RENAL IMPAIRMENT [None]
